FAERS Safety Report 12573825 (Version 2)
Quarter: 2016Q3

REPORT INFORMATION
  Report Type: Spontaneous
  Country: US (occurrence: US)
  Receive Date: 20160720
  Receipt Date: 20160811
  Transmission Date: 20161109
  Serious: No
  Sender: FDA-Public Use
  Company Number: US-PFIZER INC-2016312748

PATIENT
  Age: 59 Year
  Sex: Male
  Weight: 92.5 kg

DRUGS (14)
  1. PRILOSEC [Concomitant]
     Active Substance: OMEPRAZOLE MAGNESIUM
     Indication: GASTRIC ULCER
     Dosage: 40 MG, UNK (STARTED TAKING IT ABOUT 4 YEARS AGO)
  2. AMARYL [Concomitant]
     Active Substance: GLIMEPIRIDE
     Indication: DIABETES MELLITUS
     Dosage: 2-4 MG ON THE DAY DEPENDING ON LEVEL OF SUGAR (STARTED TAKING IT ABOUT 12 YEARS AGO)
  3. XANAX [Concomitant]
     Active Substance: ALPRAZOLAM
     Indication: ANXIETY
     Dosage: 2 MG, 4X/DAY (STARTED TAKING IT ABOUT 6 YEARS AGO)
  4. CELEBREX [Suspect]
     Active Substance: CELECOXIB
     Indication: MUSCULOSKELETAL STIFFNESS
  5. LYRICA [Concomitant]
     Active Substance: PREGABALIN
     Indication: DIABETIC NEUROPATHY
     Dosage: 100 MG, 3X/DAY (STARTED TAKING IT ABOUT 8 YEARS )
  6. OXYCODONE [Concomitant]
     Active Substance: OXYCODONE
     Indication: PAIN
     Dosage: 30 MG, 4X/DAY (STARTED TAKING IT ABOUT 6 YEARS AGO)
  7. HYDROCHLOROTHIAZIDE. [Concomitant]
     Active Substance: HYDROCHLOROTHIAZIDE
     Indication: BLOOD PRESSURE INCREASED
     Dosage: 25 MG, UNK (STARTED TAKING IT ABOUT 10 YEARS AGO)
  8. CELEBREX [Suspect]
     Active Substance: CELECOXIB
     Indication: MOBILITY DECREASED
  9. CELEBREX [Suspect]
     Active Substance: CELECOXIB
     Indication: STENOSIS
     Dosage: 100 MG, 2X/DAY
     Dates: start: 2003
  10. LYRICA [Concomitant]
     Active Substance: PREGABALIN
     Indication: BRACHIAL PLEXUS INJURY
  11. CELEBREX [Suspect]
     Active Substance: CELECOXIB
     Indication: PAIN
  12. CELEBREX [Suspect]
     Active Substance: CELECOXIB
     Indication: SKELETAL INJURY
  13. MORPHINE [Concomitant]
     Active Substance: MORPHINE
     Indication: PAIN
     Dosage: 15 MG, UNK (STARTED TAKING IT ABOUT 6 YEARS AGO)
  14. CELEBREX [Suspect]
     Active Substance: CELECOXIB
     Indication: ARTHRITIS
     Dosage: 200 MG, 2X/DAY
     Route: 048
     Dates: start: 2000

REACTIONS (4)
  - Feeling abnormal [Not Recovered/Not Resolved]
  - Musculoskeletal stiffness [Unknown]
  - Arthralgia [Unknown]
  - Musculoskeletal disorder [Not Recovered/Not Resolved]

NARRATIVE: CASE EVENT DATE: 2016
